FAERS Safety Report 25483188 (Version 1)
Quarter: 2025Q2

REPORT INFORMATION
  Report Type: Spontaneous
  Country: US (occurrence: US)
  Receive Date: 20250626
  Receipt Date: 20250626
  Transmission Date: 20250716
  Serious: No
  Sender: BRISTOL-MYERS SQUIBB COMPANY
  Company Number: US-BRISTOL-MYERS SQUIBB COMPANY-2025-085377

PATIENT
  Age: 68 Year
  Sex: Male
  Weight: 83.5 kg

DRUGS (15)
  1. CAMZYOS [Suspect]
     Active Substance: MAVACAMTEN
     Indication: Hypertrophic cardiomyopathy
     Route: 048
     Dates: start: 20220811
  2. METOPROLOL TARTRATE [Concomitant]
     Active Substance: METOPROLOL TARTRATE
     Indication: Product used for unknown indication
     Dosage: 1/2 TAB BID
  3. CALCITRIOL [Concomitant]
     Active Substance: CALCITRIOL
     Indication: Product used for unknown indication
  4. ASPIRIN [Concomitant]
     Active Substance: ASPIRIN
     Indication: Product used for unknown indication
  5. IBUPROFEN [Concomitant]
     Active Substance: IBUPROFEN
     Indication: Product used for unknown indication
  6. ACETAMINOPHEN [Concomitant]
     Active Substance: ACETAMINOPHEN
     Indication: Product used for unknown indication
  7. PROBIOTICS NOS [Concomitant]
     Active Substance: PROBIOTICS NOS
     Indication: Product used for unknown indication
  8. METOPROLOL SUCCINATE [Concomitant]
     Active Substance: METOPROLOL SUCCINATE
     Indication: Product used for unknown indication
     Dosage: ER
  9. CALCIUM SULFATE [Concomitant]
     Active Substance: CALCIUM SULFATE
     Indication: Product used for unknown indication
  10. BROCCOLI [Concomitant]
     Active Substance: BROCCOLI
     Indication: Product used for unknown indication
     Dosage: SEED EXTRACT
  11. ALFUZOSIN [Concomitant]
     Active Substance: ALFUZOSIN
     Indication: Product used for unknown indication
     Dosage: SEED EXTRACT
  12. TUMS [Concomitant]
     Active Substance: CALCIUM CARBONATE
     Indication: Product used for unknown indication
     Dosage: SEED EXTRACT
  13. BERGAMOT BPF [Concomitant]
     Indication: Product used for unknown indication
  14. GREEN TEA EXTRACT [CAMELLIA SINENSIS] [Concomitant]
     Indication: Product used for unknown indication
  15. PHYTOSTEROL COMPLEX [Concomitant]
     Indication: Product used for unknown indication

REACTIONS (1)
  - Left ventricular outflow tract gradient increased [Unknown]
